FAERS Safety Report 14982149 (Version 2)
Quarter: 2018Q3

REPORT INFORMATION
  Report Type: Report from Study
  Country: CA (occurrence: CA)
  Receive Date: 20180607
  Receipt Date: 20180716
  Transmission Date: 20181010
  Serious: Yes (Other)
  Sender: FDA-Public Use
  Company Number: CA-AMGEN-CANSL2018075501

PATIENT
  Age: 87 Year
  Sex: Female
  Weight: 84.35 kg

DRUGS (14)
  1. APO ISMN [Concomitant]
     Dosage: 60 MG, QD IN MORNING
  2. COSENTYX [Concomitant]
     Active Substance: SECUKINUMAB
     Dosage: 300 MG, QMO
  3. CELECOXIB. [Concomitant]
     Active Substance: CELECOXIB
     Dosage: 100 MG, BID (MORNING AND EVENING IN MID?MEAL)
  4. CALCIUM + VITAMIN D [Concomitant]
     Active Substance: CALCIUM\VITAMIN D
     Dosage: 500MG+400UI, QD (2 TABLETS/DAY WITH MEAL)
  5. BROMAZEPAM TEVA [Concomitant]
     Dosage: 3 MG, QD AT BEDTIME
  6. VITAMIN B12 [Concomitant]
     Active Substance: CYANOCOBALAMIN
     Dosage: 250 MUG, QD (2 TABLETS)
  7. TOLOXIN [Concomitant]
     Active Substance: DIGOXIN
     Dosage: 0.062 MG, QD
  8. ELIQUIS [Concomitant]
     Active Substance: APIXABAN
     Dosage: 5 MG, BID
  9. NOVO?GESIC [Concomitant]
     Dosage: 500 MG, BID AS NEEDED
  10. PROLIA [Suspect]
     Active Substance: DENOSUMAB
     Indication: PRODUCT USED FOR UNKNOWN INDICATION
     Dosage: 60 MG/ML, UNK
     Route: 058
  11. SANDOZ LATANOPROST [Concomitant]
     Dosage: 0.005 %, QD (AT BEDTIME IN BOTH EYES)
  12. DORZOLAMIDE + TIMOLOL GENOPTIM [Concomitant]
     Dosage: 2+0.5%, BID (IN BOTH EYES)
  13. PRAVASTATIN. [Concomitant]
     Active Substance: PRAVASTATIN
     Dosage: 20 MG, QD AT BEDTIME
  14. TELMISARTAN. [Concomitant]
     Active Substance: TELMISARTAN
     Dosage: 20 MG, QD AT BEDTIME

REACTIONS (1)
  - Atrial fibrillation [Recovering/Resolving]

NARRATIVE: CASE EVENT DATE: 20170830
